FAERS Safety Report 9241470 (Version 1)
Quarter: 2013Q2

REPORT INFORMATION
  Report Type: Report from Study
  Country: US (occurrence: US)
  Receive Date: 20130419
  Receipt Date: 20130419
  Transmission Date: 20140414
  Serious: Yes (Life-Threatening, Hospitalization, Other)
  Sender: FDA-Public Use
  Company Number: US-AMGEN-USACT2013026350

PATIENT
  Age: 67 Year
  Sex: Female
  Weight: 95.27 kg

DRUGS (19)
  1. DARBEPOETIN ALFA [Suspect]
     Indication: NEPHROGENIC ANAEMIA
     Dosage: UNK UNK, Q4WK
     Route: 058
     Dates: start: 20121218, end: 20130312
  2. CATAPRESS [Concomitant]
     Dosage: UNK UNK, QWK
     Route: 061
     Dates: start: 20091118
  3. ZEMPLAR [Concomitant]
     Dosage: UNK
     Dates: start: 20120126
  4. LORTAB [Concomitant]
     Indication: PAIN
     Dosage: UNK UNK, AS NECESSARY
     Route: 048
     Dates: start: 20071115
  5. NOVOLOG [Concomitant]
     Dosage: UNK UNK, AC
     Route: 058
     Dates: start: 20101206
  6. VITAMIN D3 [Concomitant]
     Dosage: UNK
     Dates: start: 20110310
  7. ALLOPURINOL [Concomitant]
     Dosage: UNK
     Dates: start: 20121018
  8. COLCRYS [Concomitant]
     Dosage: UNK
     Dates: start: 20121018
  9. ZYRTEC [Concomitant]
     Dosage: UNK
     Dates: start: 20130328
  10. JANUVIA [Concomitant]
     Dosage: 100 MG, QD
     Route: 048
     Dates: start: 20060615
  11. LOSARTAN [Concomitant]
     Dosage: UNK
     Dates: start: 20120409
  12. LASIX [Concomitant]
     Dosage: 20 MG, QD
     Route: 048
     Dates: start: 20080219
  13. LEVEMIR [Concomitant]
     Dosage: 60 UNIT, QD
     Route: 058
     Dates: start: 20091007
  14. GLIPIZIDE [Concomitant]
     Dosage: 10 MG, BID
     Route: 048
     Dates: start: 20000615
  15. OMEPRAZOLE [Concomitant]
     Dosage: 20 MG, QD
     Route: 048
     Dates: start: 20050615
  16. LABETALOL [Concomitant]
     Dosage: 200 MG, BID
     Route: 048
     Dates: start: 20040615
  17. CARDURA [Concomitant]
     Dosage: 4 MG, QHS
     Route: 048
     Dates: start: 20091118
  18. IROSPAN [Concomitant]
     Dosage: UNK
     Route: 048
     Dates: start: 20121115
  19. VALTURNA [Concomitant]
     Dosage: UNK UNK, QD
     Route: 048

REACTIONS (2)
  - Myocardial infarction [Recovered/Resolved]
  - Anaemia [Recovered/Resolved]
